FAERS Safety Report 9941699 (Version 2)
Quarter: 2014Q1

REPORT INFORMATION
  Report Type: Report from Study
  Country: US (occurrence: US)
  Receive Date: 20140303
  Receipt Date: 20140303
  Transmission Date: 20141002
  Serious: No
  Sender: FDA-Public Use
  Company Number: US-ABBVIE-12P-163-1000319-00

PATIENT
  Age: 28 Year
  Sex: Female

DRUGS (9)
  1. HUMIRA [Suspect]
     Indication: CROHN^S DISEASE
     Dates: start: 201206
  2. HUMIRA [Suspect]
     Dates: start: 201208
  3. HUMIRA [Suspect]
     Dates: start: 201207
  4. TOPAMAX [Concomitant]
     Indication: MIGRAINE
     Dosage: 75MG DAILY
  5. WELLBUTRIN [Concomitant]
     Indication: DEPRESSION
     Dosage: 200MG DAILY
  6. WELLBUTRIN [Concomitant]
     Indication: ANXIETY
  7. LOESTRIN [Concomitant]
     Indication: CONTRACEPTION
  8. FOLIC ACID [Concomitant]
     Indication: PRODUCT USED FOR UNKNOWN INDICATION
  9. METHOTREXATE [Concomitant]
     Indication: PRODUCT USED FOR UNKNOWN INDICATION
     Dosage: ON DAY THAT SHE DIDN^T TAKE FOLIC ACID

REACTIONS (5)
  - Drug dose omission [Not Recovered/Not Resolved]
  - Weight decreased [Not Recovered/Not Resolved]
  - Malnutrition [Not Recovered/Not Resolved]
  - Crohn^s disease [Not Recovered/Not Resolved]
  - Anal fissure [Not Recovered/Not Resolved]
